FAERS Safety Report 7781929-3 (Version None)
Quarter: 2011Q3

REPORT INFORMATION
  Report Type: 
  Country: None (occurrence: None)
  Receive Date: 20110927
  Receipt Date: 20110420
  Transmission Date: 20111222
  Serious: No
  Sender: FDA-Public Use
  Company Number: US-BAYER-2011-034762

PATIENT
  Age: 42 Year
  Sex: Female
  Weight: 147.39 kg

DRUGS (7)
  1. HUMALOG [Concomitant]
  2. LISINOPRIL [Concomitant]
  3. ULTRAVIST 150 [Suspect]
     Indication: COMPUTERISED TOMOGRAM
     Dosage: 150 ML, ONCE
     Route: 042
     Dates: start: 20110420, end: 20110420
  4. METFORMIN HCL [Concomitant]
  5. LANTUS [Concomitant]
  6. ULTRAVIST 150 [Suspect]
     Indication: ABDOMINAL PAIN
  7. BARIUM [Concomitant]
     Dosage: UNK
     Route: 048
     Dates: start: 20110420, end: 20110420

REACTIONS (3)
  - URTICARIA [None]
  - PRURITUS GENERALISED [None]
  - SNEEZING [None]
